FAERS Safety Report 4977405-3 (Version None)
Quarter: 2006Q2

REPORT INFORMATION
  Report Type: 
  Country: None (occurrence: None)
  Receive Date: 20060413
  Receipt Date: 20060329
  Transmission Date: 20061013
  Serious: Yes (Hospitalization, Other)
  Sender: FDA-Public Use
  Company Number: A-CH2006-11890

PATIENT
  Age: 60 Year
  Sex: Female

DRUGS (7)
  1. TRACLEER [Suspect]
     Indication: SCLERODERMA RENAL CRISIS
     Dosage: 62.5 MG, BID, ORAL
     Route: 048
     Dates: start: 20060125, end: 20060317
  2. RAMIPRIL [Concomitant]
  3. CALCICHEW (CALCIUM CARBONATE) [Concomitant]
  4. LOSARTAN POTASSIUM [Concomitant]
  5. SODIUM BICARBONATE [Concomitant]
  6. CYCLIZINE [Concomitant]
  7. PARACETAMOL [Concomitant]

REACTIONS (1)
  - ENCEPHALOPATHY [None]
